FAERS Safety Report 6891562-3 (Version None)
Quarter: 2010Q3

REPORT INFORMATION
  Report Type: 
  Country: None (occurrence: None)
  Receive Date: 20100731
  Receipt Date: 20070824
  Transmission Date: 20110219
  Serious: Yes (Other)
  Sender: FDA-Public Use
  Company Number: US-PFIZER INC-2007071223

PATIENT
  Age: 45 Year
  Sex: Female
  Weight: 79.5 kg

DRUGS (15)
  1. NEURONTIN [Suspect]
     Indication: SLEEP DISORDER
     Dates: start: 20040201
  2. NEURONTIN [Suspect]
     Indication: FIBROMYALGIA
  3. AMITRIPTYLINE HYDROCHLORIDE [Concomitant]
  4. KLONOPIN [Concomitant]
  5. ESTROGENS SOL/INJ [Concomitant]
     Indication: PREMATURE MENOPAUSE
  6. ZYRTEC [Concomitant]
  7. FLONASE [Concomitant]
  8. SYNTHROID [Concomitant]
     Indication: THYROID DISORDER
  9. TENORMIN [Concomitant]
     Indication: EXTRASYSTOLES
  10. PROVIGIL [Concomitant]
     Indication: FATIGUE
  11. ROZEREM [Concomitant]
  12. OMEPRAZOLE [Concomitant]
     Indication: GASTROOESOPHAGEAL REFLUX DISEASE
  13. IMITREX [Concomitant]
     Indication: MIGRAINE
  14. BOTOX [Concomitant]
     Indication: MIGRAINE
  15. MIRENA [Concomitant]
     Indication: PREMATURE MENOPAUSE

REACTIONS (3)
  - CATARACT [None]
  - NIGHT BLINDNESS [None]
  - VISION BLURRED [None]
